FAERS Safety Report 10276956 (Version 1)
Quarter: 2014Q3

REPORT INFORMATION
  Report Type: Report from Study
  Country: CO (occurrence: CO)
  Receive Date: 20140703
  Receipt Date: 20140703
  Transmission Date: 20150326
  Serious: Yes (Death, Other)
  Sender: FDA-Public Use
  Company Number: CO-ALEXION PHARMACEUTICALS INC.-A201402541

PATIENT

DRUGS (1)
  1. SOLIRIS [Suspect]
     Active Substance: ECULIZUMAB
     Indication: HAEMOLYTIC URAEMIC SYNDROME
     Dosage: 300 MG, SINGLE
     Route: 042
     Dates: start: 20140524

REACTIONS (3)
  - Splenectomy [Unknown]
  - Haemoglobin decreased [Unknown]
  - Death [Fatal]

NARRATIVE: CASE EVENT DATE: 20140614
